FAERS Safety Report 5488637-2 (Version None)
Quarter: 2007Q4

REPORT INFORMATION
  Report Type: 
  Country: None (occurrence: None)
  Receive Date: 20071017
  Receipt Date: 20070116
  Transmission Date: 20080405
  Serious: No
  Sender: FDA-Public Use
  Company Number: A0632612A

PATIENT
  Age: 5 Year
  Sex: Female
  Weight: 18.2 kg

DRUGS (3)
  1. CEFTIN [Suspect]
     Indication: DRUG USE FOR UNKNOWN INDICATION
     Dosage: 250MG TWICE PER DAY
     Route: 048
  2. ZYRTEC [Concomitant]
  3. SINGULAIR [Concomitant]

REACTIONS (1)
  - VOMITING [None]
